FAERS Safety Report 6570780-8 (Version None)
Quarter: 2010Q1

REPORT INFORMATION
  Report Type: 
  Country: None (occurrence: None)
  Receive Date: 20100202
  Receipt Date: 20100202
  Transmission Date: 20100710
  Serious: No
  Sender: FDA-Public Use
  Company Number: None

PATIENT
  Age: 62 Year
  Sex: Male
  Weight: 198.8 kg

DRUGS (2)
  1. VALIUM [Suspect]
     Indication: ANXIETY
     Dosage: 1-2 PO HS PRN
     Route: 048
     Dates: start: 20100105
  2. VALIUM [Suspect]
     Indication: STRESS
     Dosage: 1-2 PO HS PRN
     Route: 048
     Dates: start: 20100105

REACTIONS (1)
  - DRUG INEFFECTIVE [None]
